FAERS Safety Report 8776055 (Version 1)
Quarter: 2012Q4

REPORT INFORMATION
  Report Type: Report from Study
  Country: JP (occurrence: JP)
  Receive Date: 20120910
  Receipt Date: 20120910
  Transmission Date: 20130627
  Serious: Yes (Death, Hospitalization)
  Sender: FDA-Public Use
  Company Number: JP-ACTELION-A-CH2012-70957

PATIENT
  Age: 75 Year
  Sex: Male

DRUGS (10)
  1. TRACLEER [Suspect]
     Indication: PULMONARY ARTERIAL HYPERTENSION
     Dosage: 125 mg, bid
     Route: 048
     Dates: start: 20110218, end: 20110708
  2. TRACLEER [Suspect]
     Dosage: 62.5 mg, bid
     Route: 048
     Dates: start: 20101008, end: 20110217
  3. WARFARIN SODIUM [Concomitant]
  4. PREDNISOLONE [Concomitant]
  5. AMBROXOL HYDROCHLORIDE [Concomitant]
  6. CARBOCISTEINE [Concomitant]
  7. ALENDRONATE SODIUM [Concomitant]
  8. RABEPRAZOLE SODIUM [Concomitant]
  9. REBAMIPIDE [Concomitant]
  10. OXYGEN [Concomitant]

REACTIONS (10)
  - Pneumonia aspiration [Fatal]
  - Condition aggravated [Fatal]
  - Resuscitation [Fatal]
  - Cardio-respiratory arrest [Fatal]
  - Bullous lung disease [Recovering/Resolving]
  - White blood cell count increased [Recovering/Resolving]
  - Asthma [Recovering/Resolving]
  - Liver function test abnormal [Not Recovered/Not Resolved]
  - Aspartate aminotransferase increased [Not Recovered/Not Resolved]
  - Alanine aminotransferase increased [Not Recovered/Not Resolved]
